FAERS Safety Report 5346254-9 (Version None)
Quarter: 2007Q2

REPORT INFORMATION
  Report Type: 
  Country: None (occurrence: None)
  Receive Date: 20070605
  Receipt Date: 20070525
  Transmission Date: 20071010
  Serious: Yes (Life-Threatening, Hospitalization)
  Sender: FDA-Public Use
  Company Number: HQWYE467915JUN05

PATIENT
  Age: 41 Year
  Sex: Male
  Weight: 85 kg

DRUGS (5)
  1. EFFEXOR [Suspect]
     Indication: BIPOLAR DISORDER
     Route: 048
     Dates: start: 20010820, end: 20010908
  2. EFFEXOR [Suspect]
     Indication: DEPRESSION
     Route: 048
     Dates: start: 20010909, end: 20010919
  3. QUILONORM RETARD [Suspect]
     Indication: BIPOLAR DISORDER
     Route: 048
     Dates: start: 19950101
  4. DEPAKENE [Suspect]
     Indication: BIPOLAR DISORDER
     Route: 048
     Dates: start: 19970101
  5. OPIUM ALKALOIDS TOTAL [Suspect]
     Dosage: UNKNOWN
     Route: 055

REACTIONS (4)
  - AGGRESSION [None]
  - BLOOD CREATINE PHOSPHOKINASE INCREASED [None]
  - MANIA [None]
  - SEROTONIN SYNDROME [None]
